FAERS Safety Report 26062595 (Version 1)
Quarter: 2025Q4

REPORT INFORMATION
  Report Type: Spontaneous
  Country: US (occurrence: None)
  Receive Date: 20251118
  Receipt Date: 20251118
  Transmission Date: 20260118
  Serious: Yes (Hospitalization)
  Sender: FDA-CTU
  Company Number: None

PATIENT
  Age: 82 Year
  Sex: Male

DRUGS (2)
  1. AZACITIDINE [Suspect]
     Active Substance: AZACITIDINE
     Dosage: FREQUENCY : DAILY;?
  2. VENCLEXTA [Suspect]
     Active Substance: VENETOCLAX

REACTIONS (3)
  - Femur fracture [None]
  - Nausea [None]
  - Therapy interrupted [None]
